FAERS Safety Report 12780553 (Version 1)
Quarter: 2016Q3

REPORT INFORMATION
  Report Type: Report from Study
  Country: GR (occurrence: GR)
  Receive Date: 20160926
  Receipt Date: 20160926
  Transmission Date: 20161109
  Serious: No
  Sender: FDA-Public Use
  Company Number: PHHY2016GR131993

PATIENT
  Age: 65 Year
  Sex: Female

DRUGS (4)
  1. ATORVAL [Concomitant]
     Indication: HYPERCHOLESTEROLAEMIA
     Dosage: 1 DF, QD
     Route: 065
     Dates: start: 20160530
  2. FOSAMAX [Concomitant]
     Active Substance: ALENDRONATE SODIUM
     Indication: OSTEOPOROSIS
     Dosage: 5 DF, QW (ONCE A WEEK)
     Route: 065
     Dates: start: 20160511
  3. TASIGNA [Suspect]
     Active Substance: NILOTINIB
     Indication: CHRONIC MYELOID LEUKAEMIA
     Dosage: 600 MG, UNK
     Route: 048
     Dates: start: 20141126
  4. CALCIDROPS [Concomitant]
     Indication: OSTEOPOROSIS
     Dosage: 5:1 X 2
     Route: 065
     Dates: start: 20160511

REACTIONS (5)
  - Blood lactate dehydrogenase increased [Not Recovered/Not Resolved]
  - Gamma-glutamyltransferase increased [Unknown]
  - Alanine aminotransferase increased [Unknown]
  - Hypercholesterolaemia [Not Recovered/Not Resolved]
  - Aspartate aminotransferase increased [Unknown]

NARRATIVE: CASE EVENT DATE: 20160809
